FAERS Safety Report 8014289-3 (Version None)
Quarter: 2011Q4

REPORT INFORMATION
  Report Type: 
  Country: None (occurrence: None)
  Receive Date: 20111229
  Receipt Date: 20111219
  Transmission Date: 20120403
  Serious: Yes (Other)
  Sender: FDA-Public Use
  Company Number: BR-GLAXOSMITHKLINE-B0771837A

PATIENT
  Sex: Male

DRUGS (6)
  1. ASPIRIN [Concomitant]
  2. BECLOMETHASONE DIPROPIONATE [Suspect]
     Indication: ASTHMA
     Dosage: 250MCG TWICE PER DAY
     Route: 055
     Dates: start: 20111130
  3. HYDROCHLOROTHIAZIDE [Concomitant]
  4. CLENIL COMPOSITUM [Concomitant]
     Dates: end: 20111130
  5. LOSARTAN POTASSIUM [Concomitant]
  6. OMEPRAZOLE [Concomitant]

REACTIONS (4)
  - MALAISE [None]
  - CHEST PAIN [None]
  - BLOOD PRESSURE INCREASED [None]
  - FATIGUE [None]
